FAERS Safety Report 5041646-X (Version None)
Quarter: 2006Q2

REPORT INFORMATION
  Report Type: 
  Country: None (occurrence: None)
  Receive Date: 20060601
  Receipt Date: 20060223
  Transmission Date: 20061013
  Serious: No
  Sender: FDA-Public Use
  Company Number: 2006PV009148

PATIENT
  Age: 75 Year
  Sex: Female
  Weight: 108.8633 kg

DRUGS (2)
  1. BYETTA [Suspect]
     Indication: DIABETES MELLITUS NON-INSULIN-DEPENDENT
     Dosage: 5 MCG; BID; SC
     Route: 058
     Dates: start: 20060215
  2. METFORMIN [Concomitant]

REACTIONS (4)
  - DECREASED APPETITE [None]
  - DEFAECATION URGENCY [None]
  - FLATULENCE [None]
  - WEIGHT DECREASED [None]
